FAERS Safety Report 8862733 (Version 1)
Quarter: 2012Q4

REPORT INFORMATION
  Report Type: 
  Country: US (occurrence: US)
  Receive Date: 20121026
  Receipt Date: 20121026
  Transmission Date: 20130627
  Serious: No
  Sender: FDA-Public Use
  Company Number: US-ALLERGAN-1212346US

PATIENT
  Sex: Female

DRUGS (2)
  1. ALPHAGAN [Suspect]
     Indication: DRUG USE FOR UNKNOWN INDICATION
  2. TIMOLOL MALEATE [Suspect]
     Indication: INCREASED INTRAOCULAR PRESSURE
     Dosage: 1 Gtt OU, qam
     Route: 047

REACTIONS (1)
  - Urticaria [Not Recovered/Not Resolved]
